FAERS Safety Report 9837824 (Version 1)
Quarter: 2013Q4

REPORT INFORMATION
  Report Type: Spontaneous
  Country: US (occurrence: None)
  Receive Date: 20131205
  Receipt Date: 20131205
  Transmission Date: 20140711
  Serious: No
  Sender: FDA-Public Use
  Company Number: 163-POMAL-13080906

PATIENT
  Age: 71 Year
  Sex: Male
  Weight: 73.39 kg

DRUGS (10)
  1. POMALYST (POMALIDOMIDE) (4 MILLIGRAM, CAPSULES) [Suspect]
     Indication: PLASMA CELL MYELOMA
     Dosage: 4 MG, 21 IN 21 D, PO
     Route: 048
     Dates: start: 20130803, end: 20130805
  2. BACLOFEN (BACLOFEN) [Concomitant]
  3. DEXAMETHASONE (DEXAMETHASONE) [Concomitant]
  4. FILGRASTIM (FILGRASTIM) [Concomitant]
  5. CITALOPRAM (CITALOPRAM) [Concomitant]
  6. HYDROPHILIC OINTMENT (OTHER DERMATOLOGICALS) [Concomitant]
  7. BATH POWDER (OTHER DERMATOLOGICALS) [Concomitant]
  8. PREDNISONE (PREDNISONE) [Concomitant]
  9. PROCHLORPERAZINE (PROCHLORPERAZINE) [Concomitant]
  10. SILDENAFIL (SILDENAFIL) [Concomitant]

REACTIONS (3)
  - Paraesthesia [None]
  - Rash morbilliform [None]
  - Pruritus [None]
